FAERS Safety Report 7765586-8 (Version None)
Quarter: 2011Q3

REPORT INFORMATION
  Report Type: 
  Country: None (occurrence: None)
  Receive Date: 20110921
  Receipt Date: 20110912
  Transmission Date: 20111222
  Serious: Yes (Other)
  Sender: FDA-Public Use
  Company Number: PHEH2010US02434

PATIENT
  Sex: Female

DRUGS (1)
  1. ZOMETA [Suspect]
     Dosage: UNK

REACTIONS (11)
  - PHYSICAL DISABILITY [None]
  - ACTIVITIES OF DAILY LIVING IMPAIRED [None]
  - METASTASES TO SPINE [None]
  - OSTEOARTHRITIS [None]
  - METASTASES TO PELVIS [None]
  - METASTASES TO BONE [None]
  - OSTEONECROSIS OF JAW [None]
  - ANXIETY [None]
  - INJURY [None]
  - PAIN [None]
  - ANHEDONIA [None]
